FAERS Safety Report 11610791 (Version 2)
Quarter: 2015Q4

REPORT INFORMATION
  Report Type: Report from Study
  Country: MX (occurrence: MX)
  Receive Date: 20151008
  Receipt Date: 20151014
  Transmission Date: 20160304
  Serious: Yes (Disabling)
  Sender: FDA-Public Use
  Company Number: MX-ROCHE-1643558

PATIENT
  Age: 56 Year
  Sex: Female

DRUGS (4)
  1. METHOTREXATE [Concomitant]
     Active Substance: METHOTREXATE
     Indication: RHEUMATOID ARTHRITIS
  2. ARAVA [Concomitant]
     Active Substance: LEFLUNOMIDE
     Indication: RHEUMATOID ARTHRITIS
  3. BONVIVA [Suspect]
     Active Substance: IBANDRONATE SODIUM
     Indication: OSTEOPENIA
     Dosage: LAST ADMINISTERED: 22 SEP 2015
     Route: 048
     Dates: start: 20150801
  4. VALMETROL-3 [Concomitant]

REACTIONS (6)
  - Clavicle fracture [Unknown]
  - Hypersensitivity [Unknown]
  - Movement disorder [Unknown]
  - Fall [Unknown]
  - Influenza [Unknown]
  - Protein deficiency [Unknown]

NARRATIVE: CASE EVENT DATE: 201509
